FAERS Safety Report 8757734 (Version 2)
Quarter: 2012Q4

REPORT INFORMATION
  Report Type: Report from Study
  Country: ES (occurrence: ES)
  Receive Date: 20120828
  Receipt Date: 20120830
  Transmission Date: 20130627
  Serious: Yes (Hospitalization)
  Sender: FDA-Public Use
  Company Number: ES-ROCHE-1106123

PATIENT
  Age: 54 Year
  Weight: 57 kg

DRUGS (4)
  1. BLINDED PERTUZUMAB [Suspect]
     Indication: BREAST CANCER
     Dosage: Date of last dose prior to SAE: 14/Aug/2012
     Route: 042
     Dates: start: 20120707
  2. HERCEPTIN [Suspect]
     Indication: BREAST CANCER
     Dosage: Date of last dose prior to SAE : 14/Aug/2012
     Route: 042
     Dates: start: 20120707
  3. DOCETAXEL [Suspect]
     Indication: BREAST CANCER
     Dosage: Date of last dose prior to SAE: 14/Aug/2012
     Route: 042
     Dates: start: 20120707
  4. CARBOPLATIN [Suspect]
     Indication: BREAST CANCER
     Dosage: Date of last dose prior to SAE: 14/Aug/2012
     Route: 042
     Dates: start: 20120707

REACTIONS (1)
  - Dehydration [Recovered/Resolved]
